FAERS Safety Report 6656480-4 (Version None)
Quarter: 2010Q1

REPORT INFORMATION
  Report Type: 
  Country: None (occurrence: None)
  Receive Date: 20100329
  Receipt Date: 20100319
  Transmission Date: 20100710
  Serious: Yes (Other)
  Sender: FDA-Public Use
  Company Number: US-PFIZER INC-2010036725

PATIENT
  Sex: Male
  Weight: 79.365 kg

DRUGS (11)
  1. VIAGRA [Suspect]
     Indication: ERECTILE DYSFUNCTION
     Dosage: 100 MG, AS NEEDED
     Route: 048
  2. BUPROPION [Concomitant]
     Indication: DEPRESSION
     Dosage: UNK
  3. WARFARIN [Concomitant]
     Indication: COAGULATION TIME ABNORMAL
     Dosage: UNK
  4. LIPITOR [Concomitant]
     Dosage: UNK
  5. LISINOPRIL [Concomitant]
     Dosage: UNK
  6. CARVEDILOL [Concomitant]
     Dosage: UNK
  7. DIGITEK [Concomitant]
     Dosage: UNK
  8. AMLODIPINE [Concomitant]
     Dosage: UNK
  9. MIRTAZAPINE [Concomitant]
     Dosage: UNK
  10. LAMOTRIGINE [Concomitant]
     Dosage: UNK
  11. FUROSEMIDE [Concomitant]
     Dosage: UNK

REACTIONS (7)
  - ABDOMINAL DISCOMFORT [None]
  - CIRCUMSTANCE OR INFORMATION CAPABLE OF LEADING TO MEDICATION ERROR [None]
  - DEPRESSION [None]
  - GLAUCOMA [None]
  - LOSS OF LIBIDO [None]
  - VISUAL FIELD DEFECT [None]
  - VISUAL IMPAIRMENT [None]
